FAERS Safety Report 8491182-3 (Version None)
Quarter: 2012Q3

REPORT INFORMATION
  Report Type: 
  Country: None (occurrence: None)
  Receive Date: 20120706
  Receipt Date: 20120625
  Transmission Date: 20120928
  Serious: Yes (Other)
  Sender: FDA-Public Use
  Company Number: CA-JNJFOC-20120518603

PATIENT
  Sex: Male
  Weight: 89.5 kg

DRUGS (8)
  1. PANTOPRAZOLE [Concomitant]
     Route: 065
  2. ROCALTROL [Concomitant]
     Route: 065
  3. PULMICORT [Concomitant]
     Route: 065
  4. NYSTATIN [Concomitant]
     Route: 065
  5. VENTOLIN [Concomitant]
     Route: 065
  6. REMICADE [Suspect]
     Indication: CROHN'S DISEASE
     Route: 042
  7. AZATHIOPRINE [Concomitant]
     Route: 065
  8. PREDNISONE TAB [Concomitant]
     Route: 065

REACTIONS (1)
  - ASTHMA [None]
